FAERS Safety Report 7318709-9 (Version None)
Quarter: 2011Q1

REPORT INFORMATION
  Report Type: 
  Country: None (occurrence: None)
  Receive Date: 20110228
  Receipt Date: 20101103
  Transmission Date: 20110831
  Serious: No
  Sender: FDA-Public Use
  Company Number: A0515596A

PATIENT
  Sex: Female

DRUGS (16)
  1. NEXIUM [Concomitant]
  2. IMITREX [Concomitant]
     Route: 048
  3. METOCLOPRAMIDE HCL [Concomitant]
  4. CYTOTEC [Concomitant]
  5. REGLAN [Concomitant]
  6. INSULIN [Concomitant]
  7. CRESTOR [Concomitant]
  8. UNSPECIFIED MEDICATION [Concomitant]
  9. ALTACE [Concomitant]
  10. SYNTHROID [Concomitant]
  11. UNSPECIFIED MEDICATION [Concomitant]
  12. IMITREX [Suspect]
     Indication: MIGRAINE
     Dosage: 1INJ AS REQUIRED
     Route: 058
  13. BONIVA [Concomitant]
  14. EFFEXOR [Concomitant]
  15. CLONOPIN [Concomitant]
  16. ZOFRAN [Concomitant]

REACTIONS (3)
  - PRODUCT QUALITY ISSUE [None]
  - INJECTION SITE PAIN [None]
  - DRUG INEFFECTIVE [None]
